FAERS Safety Report 24621048 (Version 1)
Quarter: 2024Q4

REPORT INFORMATION
  Report Type: Report from Study
  Country: US (occurrence: US)
  Receive Date: 20241114
  Receipt Date: 20241114
  Transmission Date: 20250115
  Serious: Yes (Other)
  Sender: AEGERION
  Company Number: US-AMRYT PHARMACEUTICALS DAC-AEGR007483

PATIENT
  Sex: Male
  Weight: 17.995 kg

DRUGS (1)
  1. FILSUVEZ [Suspect]
     Active Substance: BIRCH TRITERPENES
     Indication: Epidermolysis bullosa
     Dosage: 10% W/W GEL 23.4G. APPLY A 1 MM LAYER TO AFFECTED WOUND SURFACE(S) AT EACH DRESSING CHANGE UNTIL WOU
     Route: 061
     Dates: start: 20240723, end: 20241012

REACTIONS (4)
  - Wound infection pseudomonas [Recovering/Resolving]
  - Skin infection [Recovering/Resolving]
  - Product residue present [Unknown]
  - Product quality issue [Unknown]
